FAERS Safety Report 10970444 (Version 1)
Quarter: 2015Q1

REPORT INFORMATION
  Report Type: Spontaneous
  Country: CA (occurrence: CA)
  Receive Date: 20150331
  Receipt Date: 20150331
  Transmission Date: 20150721
  Serious: Yes (Other)
  Sender: FDA-Public Use
  Company Number: CA-TEVA-550999ACC

PATIENT
  Age: 24 Year
  Sex: Female

DRUGS (3)
  1. NOVO-LEXIN [Suspect]
     Active Substance: CEPHALEXIN
     Indication: LIMB INJURY
     Dosage: UNKNOWN FORM STRENGTH
     Route: 065
  2. NAPROXEN. [Suspect]
     Active Substance: NAPROXEN
     Indication: LIMB INJURY
     Dosage: UNKNOWN FORM STRENGTH
     Route: 048
  3. TYLENOL WITH CODEINE [Concomitant]
     Active Substance: ACETAMINOPHEN\CODEINE PHOSPHATE
     Dosage: UNKNOWN FORM STRENGTH
     Route: 065

REACTIONS (4)
  - Pain [Unknown]
  - Somnolence [Unknown]
  - Arthralgia [Unknown]
  - Fungal infection [Unknown]
